FAERS Safety Report 7780700-6 (Version None)
Quarter: 2011Q3

REPORT INFORMATION
  Report Type: 
  Country: None (occurrence: None)
  Receive Date: 20110927
  Receipt Date: 20110620
  Transmission Date: 20111222
  Serious: No
  Sender: FDA-Public Use
  Company Number: US-BRISTOL-MYERS SQUIBB COMPANY-15644503

PATIENT
  Age: 62 Year
  Sex: Female

DRUGS (3)
  1. AVAPRO [Suspect]
  2. LIPITOR [Concomitant]
     Indication: BLOOD CHOLESTEROL INCREASED
  3. XALATAN [Concomitant]
     Indication: GLAUCOMA
     Dosage: EYE DROPS
     Route: 047

REACTIONS (1)
  - CIRCUMSTANCE OR INFORMATION CAPABLE OF LEADING TO MEDICATION ERROR [None]
